FAERS Safety Report 7096396-5 (Version None)
Quarter: 2010Q4

REPORT INFORMATION
  Report Type: 
  Country: None (occurrence: None)
  Receive Date: 20101111
  Receipt Date: 20100923
  Transmission Date: 20110411
  Serious: Yes (Death, Life-Threatening, Hospitalization)
  Sender: FDA-Public Use
  Company Number: US-AMGEN-USASP2010001692

PATIENT

DRUGS (3)
  1. NEUPOGEN [Suspect]
     Indication: NEUTROPENIA
     Dosage: UNK
     Route: 042
     Dates: start: 19920225
  2. METHOTREXATE [Suspect]
     Dosage: UNK
     Route: 065
     Dates: start: 19920219
  3. LEUCOVORIN CALCIUM [Concomitant]
     Dosage: UNK
     Dates: start: 19920220

REACTIONS (2)
  - DEATH [None]
  - SKIN EXFOLIATION [None]
